FAERS Safety Report 20339163 (Version 1)
Quarter: 2022Q1

REPORT INFORMATION
  Report Type: Report from Study
  Country: US (occurrence: US)
  Receive Date: 20220117
  Receipt Date: 20220117
  Transmission Date: 20220424
  Serious: Yes (Other)
  Sender: FDA-Public Use
  Company Number: US-ABBVIE-22K-163-4232870-00

PATIENT
  Sex: Female

DRUGS (2)
  1. HUMIRA [Suspect]
     Active Substance: ADALIMUMAB
     Indication: Psoriatic arthropathy
     Route: 058
  2. HUMIRA [Suspect]
     Active Substance: ADALIMUMAB
     Indication: Psoriasis

REACTIONS (7)
  - Cholelithiasis [Recovering/Resolving]
  - Gallbladder obstruction [Recovering/Resolving]
  - Gangrene [Recovered/Resolved]
  - Sepsis [Recovered/Resolved]
  - Ingrowing nail [Recovered/Resolved]
  - Dehydration [Unknown]
  - Functional gastrointestinal disorder [Recovered/Resolved]
